FAERS Safety Report 7379695-9 (Version None)
Quarter: 2011Q1

REPORT INFORMATION
  Report Type: 
  Country: None (occurrence: None)
  Receive Date: 20110318
  Receipt Date: 20110315
  Transmission Date: 20110831
  Serious: Yes (Hospitalization)
  Sender: FDA-Public Use
  Company Number: 009406

PATIENT
  Sex: Female
  Weight: 73.5 kg

DRUGS (10)
  1. METHOTREXATE [Concomitant]
  2. IBUPROFEN [Concomitant]
  3. CERTOLIZUMAB PEGOL [Suspect]
     Indication: RHEUMATOID ARTHRITIS
     Dosage: 400, 200 MG 1X2 WEEKS, SUBCUTANEOUS
     Route: 058
     Dates: start: 20100104, end: 20100324
  4. CERTOLIZUMAB PEGOL [Suspect]
     Indication: RHEUMATOID ARTHRITIS
     Dosage: 400, 200 MG 1X2 WEEKS, SUBCUTANEOUS
     Route: 058
     Dates: start: 20091111, end: 20100103
  5. FOLIC ACID [Concomitant]
  6. ATENOLOL [Concomitant]
  7. HYDROCHLOROTHIAZIDE [Concomitant]
  8. BACTRIM DS [Concomitant]
  9. LOVASTATIN [Concomitant]
  10. LEVAQUIN [Concomitant]

REACTIONS (10)
  - UPPER RESPIRATORY TRACT INFECTION [None]
  - HEADACHE [None]
  - THROMBOCYTOPENIA [None]
  - EPISTAXIS [None]
  - HAEMOGLOBIN DECREASED [None]
  - ERYTHEMA [None]
  - PYREXIA [None]
  - PHARYNGEAL HAEMORRHAGE [None]
  - CHEST X-RAY ABNORMAL [None]
  - BLOOD POTASSIUM DECREASED [None]
